FAERS Safety Report 4354279-5 (Version None)
Quarter: 2004Q2

REPORT INFORMATION
  Report Type: 
  Country: None (occurrence: None)
  Receive Date: 20040503
  Receipt Date: 20040416
  Transmission Date: 20050107
  Serious: Yes (Hospitalization)
  Sender: FDA-Public Use
  Company Number: F02200300101

PATIENT
  Age: 67 Year
  Sex: Male

DRUGS (8)
  1. XATRAL - (ALFUZOSIN) - TABLET PR - 10 MG [Suspect]
     Indication: BENIGN PROSTATIC HYPERPLASIA
     Dosage: 10 MG OD ORAL
     Route: 048
     Dates: start: 20010125
  2. PLAVIX [Concomitant]
  3. OLMIFON (ADRAFINIL) [Concomitant]
  4. NASONEX [Concomitant]
  5. DI-ANTALVIC (PARACETAMOL, DEXTROPROPOXYPHENE) [Concomitant]
  6. AERIUS (DESLORATADINE) [Concomitant]
  7. IMOVANE (ZOPICLONE) [Concomitant]
  8. FRAXIPARINE (HEPARIN-FRACTION, CALCIUM SALT) [Concomitant]

REACTIONS (6)
  - ANGIOMYOLIPOMA [None]
  - COLON CANCER [None]
  - METASTASES TO LYMPH NODES [None]
  - PROSTATIC SPECIFIC ANTIGEN DECREASED [None]
  - RECTAL HAEMORRHAGE [None]
  - RENAL HAEMATOMA [None]
